FAERS Safety Report 24990088 (Version 1)
Quarter: 2025Q1

REPORT INFORMATION
  Report Type: Spontaneous
  Country: BE (occurrence: BE)
  Receive Date: 20250220
  Receipt Date: 20250220
  Transmission Date: 20250409
  Serious: Yes (Death)
  Sender: Vantive US Healthcare
  Company Number: BE-VANTIVE-2025VAN000827

PATIENT

DRUGS (1)
  1. REGIOCIT [Suspect]
     Active Substance: SODIUM CHLORIDE\SODIUM CITRATE
     Route: 065

REACTIONS (1)
  - Metabolic acidosis [Fatal]
